FAERS Safety Report 5500073-9 (Version None)
Quarter: 2007Q4

REPORT INFORMATION
  Report Type: 
  Country: None (occurrence: None)
  Receive Date: 20071024
  Receipt Date: 20071009
  Transmission Date: 20080405
  Serious: Yes (Life-Threatening, Hospitalization, Other)
  Sender: FDA-Public Use
  Company Number: 162570ISR

PATIENT
  Age: 49 Year
  Sex: Female

DRUGS (1)
  1. CITALOPRAM HYDROBROMIDE [Suspect]
     Indication: OVARIAN CANCER
     Dosage: 2DF (1 DAYS)
     Route: 048
     Dates: start: 20041206, end: 20070926

REACTIONS (3)
  - INFERIOR VENA CAVAL OCCLUSION [None]
  - RETROPERITONEAL FIBROSIS [None]
  - URETERIC OBSTRUCTION [None]
